FAERS Safety Report 8210188-2 (Version None)
Quarter: 2012Q1

REPORT INFORMATION
  Report Type: 
  Country: None (occurrence: None)
  Receive Date: 20120314
  Receipt Date: 20110310
  Transmission Date: 20120608
  Serious: No
  Sender: FDA-Public Use
  Company Number: US-ASTRAZENECA-2011SE13844

PATIENT
  Age: 49 Year
  Sex: Female

DRUGS (2)
  1. ZOLOFT [Suspect]
  2. TOPROL-XL [Suspect]
     Route: 048

REACTIONS (5)
  - BLOOD GLUCOSE ABNORMAL [None]
  - EXTRASYSTOLES [None]
  - DRUG DOSE OMISSION [None]
  - BLOOD PRESSURE DECREASED [None]
  - PALPITATIONS [None]
